FAERS Safety Report 14594955 (Version 1)
Quarter: 2018Q1

REPORT INFORMATION
  Report Type: Spontaneous
  Country: US (occurrence: US)
  Receive Date: 20180302
  Receipt Date: 20180302
  Transmission Date: 20180509
  Serious: Yes (Other)
  Sender: FDA-Public Use
  Company Number: US-AKORN PHARMACEUTICALS-2017AKN00668

PATIENT
  Age: 20 Year
  Sex: Male
  Weight: 106.58 kg

DRUGS (8)
  1. FLOVENT HFA [Concomitant]
     Active Substance: FLUTICASONE PROPIONATE
  2. ADVAIR DISKUS [Concomitant]
     Active Substance: FLUTICASONE PROPIONATE\SALMETEROL XINAFOATE
  3. DRYSOL SOL [Concomitant]
  4. MYORISAN [Suspect]
     Active Substance: ISOTRETINOIN
     Indication: ACNE
     Dosage: 40 MG, 2X/DAY
     Route: 048
     Dates: start: 20160922, end: 20170502
  5. COMBIVENT [Concomitant]
     Active Substance: ALBUTEROL SULFATE\IPRATROPIUM BROMIDE
  6. PATANOL [Concomitant]
     Active Substance: OLOPATADINE HYDROCHLORIDE
  7. NASONEX ACT [Concomitant]
  8. OTC WORKOUT SUPPLEMENT WITH VARIETY OF VITAMINS + UNCLEAR INGREDIENTS [Suspect]
     Active Substance: DIETARY SUPPLEMENT
     Dosage: UNK
     Dates: end: 2017

REACTIONS (4)
  - Pain [Recovered/Resolved]
  - Aspartate aminotransferase increased [Recovering/Resolving]
  - Blood creatine phosphokinase increased [Recovering/Resolving]
  - Alanine aminotransferase increased [Recovering/Resolving]

NARRATIVE: CASE EVENT DATE: 201704
